FAERS Safety Report 7577023-7 (Version None)
Quarter: 2011Q2

REPORT INFORMATION
  Report Type: 
  Country: None (occurrence: None)
  Receive Date: 20110628
  Receipt Date: 20110623
  Transmission Date: 20111010
  Serious: No
  Sender: FDA-Public Use
  Company Number: US-PFIZER INC-2011140906

PATIENT
  Sex: Male
  Weight: 88 kg

DRUGS (5)
  1. LIPITOR [Suspect]
     Indication: BLOOD CHOLESTEROL INCREASED
     Dosage: 20 MG, 1X/DAY
     Route: 048
     Dates: start: 20110516
  2. HYDROCHLOROTHIAZIDE [Suspect]
     Indication: HYPERTENSION
     Dosage: 25 MG, 1X/DAY
     Route: 048
     Dates: start: 20110301
  3. ARTHROTEC [Suspect]
     Indication: ARTHRALGIA
     Dosage: 75/200 MG, 1X/DAY
     Route: 048
     Dates: start: 20110421
  4. ZESTRIL [Suspect]
     Indication: HYPERTENSION
     Dosage: 20 MG, 1X/DAY
     Route: 048
     Dates: start: 20110301
  5. ACYCLOVIR [Concomitant]
     Dosage: 400 MG, UNK

REACTIONS (1)
  - DRUG SCREEN POSITIVE [None]
